FAERS Safety Report 7267448-1 (Version None)
Quarter: 2011Q1

REPORT INFORMATION
  Report Type: 
  Country: None (occurrence: None)
  Receive Date: 20110121
  Receipt Date: 20110111
  Transmission Date: 20110831
  Serious: Yes (Hospitalization, Other)
  Sender: FDA-Public Use
  Company Number: 020802

PATIENT
  Sex: Female
  Weight: 78 kg

DRUGS (18)
  1. CIMZIA [Suspect]
     Indication: CROHN'S DISEASE
     Dosage: 400 MG 1X/4 WEEKS SUBCUTANEOUS
     Route: 058
     Dates: start: 20100115
  2. ZANAFLEX [Concomitant]
  3. LOMOTIL /00034001/ [Concomitant]
  4. PREDNISONE [Concomitant]
  5. ENTECORT [Concomitant]
  6. NEXIUM /01479303/ [Concomitant]
  7. XANAX [Concomitant]
  8. NORVASC [Concomitant]
  9. HYDROCORTISONE [Concomitant]
  10. PLAQUENIL [Concomitant]
  11. NYSTATIN [Concomitant]
  12. ZOLOFT [Concomitant]
  13. PHENERGAN HCL [Concomitant]
  14. AMBIEN [Concomitant]
  15. COUMADIN [Concomitant]
  16. CLOBETASOL PROPIONATE [Concomitant]
  17. PEPCID AC [Concomitant]
  18. POTASSIUM [Concomitant]

REACTIONS (5)
  - ARTHRALGIA [None]
  - PYREXIA [None]
  - FEMUR FRACTURE [None]
  - WEIGHT INCREASED [None]
  - FATIGUE [None]
